FAERS Safety Report 15318938 (Version 1)
Quarter: 2018Q3

REPORT INFORMATION
  Report Type: Spontaneous
  Country: US (occurrence: US)
  Receive Date: 20180820
  Receipt Date: 20180820
  Transmission Date: 20181010
  Serious: Yes (Other)
  Sender: FDA-Public Use
  Company Number: None

PATIENT
  Age: 73 Year
  Sex: Female
  Weight: 67.95 kg

DRUGS (5)
  1. LANCOME PARIS ABSOLUE PRECIOUS CELLS BROAD SPECTRUM SPF 15 SUNSCREEN INTENSE REVITALIZING [Suspect]
     Active Substance: AVOBENZONE\HOMOSALATE\OCTISALATE\OCTOCRYLENE
     Indication: DRY SKIN PROPHYLAXIS
     Route: 061
     Dates: start: 20170801, end: 20180820
  2. AMLODIPINE?VALSARTAN [Concomitant]
     Active Substance: AMLODIPINE\VALSARTAN
  3. LANCOME PARIS ABSOLUE PRECIOUS CELLS BROAD SPECTRUM SPF 15 SUNSCREEN INTENSE REVITALIZING [Suspect]
     Active Substance: AVOBENZONE\HOMOSALATE\OCTISALATE\OCTOCRYLENE
     Indication: PROPHYLAXIS AGAINST SOLAR RADIATION
     Route: 061
     Dates: start: 20170801, end: 20180820
  4. ATORVASTATIN [Concomitant]
     Active Substance: ATORVASTATIN
  5. CALCIUM [Concomitant]
     Active Substance: CALCIUM

REACTIONS (3)
  - Eye irritation [None]
  - Ocular hyperaemia [None]
  - Product physical consistency issue [None]

NARRATIVE: CASE EVENT DATE: 20180820
